FAERS Safety Report 14053813 (Version 1)
Quarter: 2017Q4

REPORT INFORMATION
  Report Type: Spontaneous
  Country: US (occurrence: None)
  Receive Date: 20171005
  Receipt Date: 20171005
  Transmission Date: 20180321
  Serious: Yes (Death)
  Sender: FDA-Public Use
  Company Number: None

PATIENT
  Age: 41 Year
  Sex: Male
  Weight: 150 kg

DRUGS (13)
  1. APIXABAN BRISTOL-MYERS SQUIBB [Suspect]
     Active Substance: APIXABAN
     Indication: DEEP VEIN THROMBOSIS
     Route: 048
     Dates: start: 20170619, end: 20170908
  2. CITALOPRAM [Concomitant]
     Active Substance: CITALOPRAM HYDROBROMIDE
  3. COREG [Concomitant]
     Active Substance: CARVEDILOL
  4. POTASSIUM CHLORIDE. [Concomitant]
     Active Substance: POTASSIUM CHLORIDE
  5. METOLAZONE. [Concomitant]
     Active Substance: METOLAZONE
  6. ASTEPRO [Concomitant]
     Active Substance: AZELASTINE HYDROCHLORIDE
  7. FUROSEMIDE. [Concomitant]
     Active Substance: FUROSEMIDE
  8. PREDNISONE. [Concomitant]
     Active Substance: PREDNISONE
  9. OXYCODONE [Concomitant]
     Active Substance: OXYCODONE
  10. OMEPRAZOLE. [Concomitant]
     Active Substance: OMEPRAZOLE
  11. BACTRIM [Concomitant]
     Active Substance: SULFAMETHOXAZOLE\TRIMETHOPRIM
  12. GABAPENTIN. [Concomitant]
     Active Substance: GABAPENTIN
  13. OXYGEN. [Concomitant]
     Active Substance: OXYGEN

REACTIONS (5)
  - Pulmonary hypertension [None]
  - Pulse absent [None]
  - Respiratory distress [None]
  - Hypoxia [None]
  - Arrhythmia [None]

NARRATIVE: CASE EVENT DATE: 20170908
